FAERS Safety Report 5494024-3 (Version None)
Quarter: 2007Q4

REPORT INFORMATION
  Report Type: 
  Country: None (occurrence: None)
  Receive Date: 20071022
  Receipt Date: 20071017
  Transmission Date: 20080405
  Serious: Yes (Death)
  Sender: FDA-Public Use
  Company Number: 163-21880-07100945

PATIENT
  Age: 50 Year
  Sex: Male

DRUGS (1)
  1. REVLIMID [Suspect]
     Indication: HODGKIN'S DISEASE
     Dosage: 25 MG,1 IN 1 D,ORAL
     Route: 048
     Dates: start: 20070501, end: 20070601

REACTIONS (1)
  - LOCALISED INFECTION [None]
